FAERS Safety Report 4375873-1 (Version None)
Quarter: 2004Q2

REPORT INFORMATION
  Report Type: 
  Country: None (occurrence: None)
  Receive Date: 20040609
  Receipt Date: 20040609
  Transmission Date: 20050107
  Serious: Yes (Hospitalization)
  Sender: FDA-Public Use
  Company Number: None

PATIENT
  Age: 65 Year
  Sex: Female
  Weight: 90 kg

DRUGS (10)
  1. IRESSA [Suspect]
     Indication: LUNG NEOPLASM MALIGNANT
     Dosage: 250 MG PO QD/ LAST DOSE
     Route: 048
     Dates: end: 20040517
  2. FASLODEX [Suspect]
     Indication: LUNG NEOPLASM MALIGNANT
     Dosage: 250 MG IM Q MONTH
     Route: 030
     Dates: end: 20040505
  3. LOVOXYL [Concomitant]
  4. DIOVAN [Concomitant]
  5. VITAMIN B-12 [Concomitant]
  6. GLUCOSAMINE [Concomitant]
  7. PHENYTOIN [Concomitant]
  8. MYCELEX [Concomitant]
  9. RANITIDINE [Concomitant]
  10. DEXAMETHASONE [Concomitant]

REACTIONS (12)
  - AGITATION [None]
  - CLONUS [None]
  - CONVULSION [None]
  - HYPERSENSITIVITY [None]
  - METASTASES TO CENTRAL NERVOUS SYSTEM [None]
  - OEDEMA [None]
  - POSTURING [None]
  - RASH PRURITIC [None]
  - RESPIRATORY DISTRESS [None]
  - STEVENS-JOHNSON SYNDROME [None]
  - SWELLING FACE [None]
  - SWOLLEN TONGUE [None]
